FAERS Safety Report 9515180 (Version 1)
Quarter: 2013Q1

REPORT INFORMATION
  Report Type: Spontaneous
  Country: US (occurrence: None)
  Receive Date: 20130305
  Receipt Date: 20130305
  Transmission Date: 20140127
  Serious: Yes (Other)
  Sender: FDA-Public Use
  Company Number: 163-21880-12122851

PATIENT
  Sex: 0

DRUGS (5)
  1. REVLIMID [Suspect]
     Indication: PLASMA CELL MYELOMA
     Route: 048
     Dates: start: 2006
  2. DEXAMETHASONE [Suspect]
     Indication: PLASMA CELL MYELOMA
     Dosage: 40MG/DAY ON DAYS 1-4, 9-12 + 17-21 OF 28-DAY CYCLE OR WEEKLY (WEEKLY DOSE OF 40 MG ON DAYS 1, 8, 15, 22 OF EACH 28-DAY CYCLE
     Dates: start: 2006
  3. ASPIRIN (UNKNOWN) [Concomitant]
  4. WARFARIN (WARFARIN) (UNKNOWN) [Concomitant]
  5. LOW-MOLECULAR-WEIGHT HEPARIN (HEPARIN) (UNKNOWN) [Concomitant]

REACTIONS (1)
  - Embolism venous [None]
